FAERS Safety Report 18135708 (Version 1)
Quarter: 2020Q3

REPORT INFORMATION
  Report Type: Spontaneous
  Country: US (occurrence: US)
  Receive Date: 20200811
  Receipt Date: 20200811
  Transmission Date: 20201103
  Serious: Yes (Other)
  Sender: FDA-Public Use
  Company Number: US-PURDUE-USA-2020-0160696

PATIENT

DRUGS (2)
  1. OXYCODONE HYDROCHLORIDE (SIMILAR TO NDA 22?272) [Suspect]
     Active Substance: OXYCODONE HYDROCHLORIDE
     Indication: SURGERY
     Dosage: UNK
     Route: 048
  2. MORPHINE SULFATE (SIMILAR TO NDA 19?516) [Suspect]
     Active Substance: MORPHINE SULFATE
     Indication: SURGERY
     Route: 048

REACTIONS (8)
  - Gait inability [Unknown]
  - Dysphagia [Unknown]
  - Muscle atrophy [Unknown]
  - Illness [Unknown]
  - Gastrointestinal tube insertion [Unknown]
  - Drug dependence [Unknown]
  - Choking [Unknown]
  - Unevaluable event [Unknown]
